FAERS Safety Report 12434465 (Version 1)
Quarter: 2016Q2

REPORT INFORMATION
  Report Type: Spontaneous
  Country: US (occurrence: US)
  Receive Date: 20160603
  Receipt Date: 20160603
  Transmission Date: 20160815
  Serious: No
  Sender: FDA-Public Use
  Company Number: US-OTSUKA-2016_001261

PATIENT

DRUGS (1)
  1. SAMSCA [Suspect]
     Active Substance: TOLVAPTAN
     Indication: HYPONATRAEMIA
     Dosage: 15 MG, SINGLE
     Route: 065
     Dates: start: 201512, end: 201512

REACTIONS (1)
  - Rapid correction of hyponatraemia [Unknown]

NARRATIVE: CASE EVENT DATE: 201512
